FAERS Safety Report 8534417-0 (Version None)
Quarter: 2012Q3

REPORT INFORMATION
  Report Type: 
  Country: None (occurrence: None)
  Receive Date: 20120712
  Receipt Date: 20120702
  Transmission Date: 20120928
  Serious: Yes (Hospitalization)
  Sender: FDA-Public Use
  Company Number: 201207007

PATIENT
  Age: 81 Year
  Sex: Female
  Weight: 58.514 kg

DRUGS (2)
  1. LEVOXYL [Concomitant]
  2. XIAFLEX [Suspect]
     Indication: DUPUYTREN'S CONTRACTURE
     Dosage: 1 IN 1 D, INTRALESIONAL
     Route: 026
     Dates: start: 20110501, end: 20110501

REACTIONS (2)
  - DRUG INEFFECTIVE [None]
  - ATRIAL FIBRILLATION [None]
